FAERS Safety Report 24190298 (Version 1)
Quarter: 2024Q3

REPORT INFORMATION
  Report Type: Spontaneous
  Country: GR (occurrence: GR)
  Receive Date: 20240808
  Receipt Date: 20240808
  Transmission Date: 20241016
  Serious: Yes (Other)
  Sender: ARGENX BVBA
  Company Number: GR-Medison-000488

PATIENT

DRUGS (3)
  1. VYVGART [Suspect]
     Active Substance: EFGARTIGIMOD ALFA-FCAB
     Indication: Myasthenia gravis
     Dosage: 670 MG, 1/WEEK
     Route: 042
     Dates: start: 20240726, end: 20240726
  2. PYRIDOSTIGMINE [Concomitant]
     Active Substance: PYRIDOSTIGMINE
     Indication: Product used for unknown indication
     Dosage: UNK, 1 TIMES FOUR DAILY
     Route: 065
  3. CORTICOSTEROID NOS [Concomitant]
     Active Substance: CORTICOSTEROID NOS
     Indication: Product used for unknown indication
     Dosage: 50 MG, DAILY
     Route: 065

REACTIONS (6)
  - Erythema [Not Recovered/Not Resolved]
  - Ocular hyperaemia [Not Recovered/Not Resolved]
  - C-reactive protein increased [Not Recovered/Not Resolved]
  - White blood cell count increased [Not Recovered/Not Resolved]
  - Face oedema [Not Recovered/Not Resolved]
  - Eye oedema [Not Recovered/Not Resolved]

NARRATIVE: CASE EVENT DATE: 20240730
